FAERS Safety Report 4662058-4 (Version None)
Quarter: 2005Q2

REPORT INFORMATION
  Report Type: 
  Country: None (occurrence: None)
  Receive Date: 20050512
  Receipt Date: 20050512
  Transmission Date: 20051028
  Serious: Yes (Life-Threatening, Hospitalization)
  Sender: FDA-Public Use
  Company Number: None

PATIENT
  Age: 45 Year
  Sex: Male
  Weight: 95.709 kg

DRUGS (12)
  1. ETANERCEPT [Suspect]
     Indication: RHEUMATOID ARTHRITIS
     Dosage: 25 MG TWICE PER WEEK  SUBCUTANEOUS
     Route: 058
     Dates: start: 20040401, end: 20050203
  2. METHOTREXATE [Concomitant]
  3. HYDROXYCHOLOROQUINE [Concomitant]
  4. ALENDRONATE SODIUM [Concomitant]
  5. CALCIUM GLUCONATE [Concomitant]
  6. VITAMIN D [Concomitant]
  7. ATENOLOL [Concomitant]
  8. VALSARTAN [Concomitant]
  9. TRAMADOL [Concomitant]
  10. NAPROSYN [Concomitant]
  11. FOLIC ACID [Concomitant]
  12. ALLOPURINOL [Concomitant]

REACTIONS (4)
  - DYSPNOEA [None]
  - PNEUMONIA [None]
  - RESPIRATORY DISORDER [None]
  - THERAPY NON-RESPONDER [None]
